FAERS Safety Report 4492052-8 (Version None)
Quarter: 2004Q4

REPORT INFORMATION
  Report Type: 
  Country: None (occurrence: None)
  Receive Date: 20041101
  Receipt Date: 20041027
  Transmission Date: 20050328
  Serious: Yes (Death)
  Sender: FDA-Public Use
  Company Number: 2004-121601-NL

PATIENT
  Age: 59 Year

DRUGS (11)
  1. MIRTAZAPINE [Suspect]
  2. ACETAMINOPHEN [Suspect]
     Dosage: DF
  3. HYDROCODONE BITARTRATE [Suspect]
     Dosage: DF, ORAL
     Route: 048
  4. MORPHINE SULFATE [Suspect]
     Dosage: 60 MG BID, ORAL
     Route: 048
  5. DOXEPIN HYDROCHLORIDE [Suspect]
     Dosage: 50 MG
  6. ACETAMINOPHEN [Concomitant]
  7. CITALOPRAM [Concomitant]
  8. DOXEPIN HYDROCHLORIDE [Concomitant]
  9. MIRTAZAPINE [Concomitant]
  10. MORPHINE [Concomitant]
  11. SALICYLATES [Concomitant]

REACTIONS (1)
  - DRUG LEVEL INCREASED [None]
